FAERS Safety Report 8168137 (Version 2)
Quarter: 2012Q4

REPORT INFORMATION
  Report Type: 
  Country: US (occurrence: US)
  Receive Date: 20111004
  Receipt Date: 20121204
  Transmission Date: 20130627
  Serious: Yes (Death, Hospitalization)
  Sender: FDA-Public Use
  Company Number: US-GLAXOSMITHKLINE-A0918356A

PATIENT
  Sex: Male

DRUGS (1)
  1. AVANDIA [Suspect]
     Indication: DIABETES MELLITUS
     Dosage: 4MG Unknown
     Route: 048

REACTIONS (5)
  - Death [Fatal]
  - Cerebrovascular accident [Unknown]
  - Renal failure [Unknown]
  - Transient ischaemic attack [Unknown]
  - Cardiac failure [Unknown]
